FAERS Safety Report 16156844 (Version 2)
Quarter: 2019Q2

REPORT INFORMATION
  Report Type: Spontaneous
  Country: FR (occurrence: FR)
  Receive Date: 20190404
  Receipt Date: 20190419
  Transmission Date: 20190711
  Serious: Yes (Hospitalization)
  Sender: FDA-Public Use
  Company Number: FR-BECTON DICKINSON-2019BDN00135

PATIENT
  Age: 53 Year
  Sex: Female
  Weight: 91 kg

DRUGS (9)
  1. CYMBALTA [Concomitant]
     Active Substance: DULOXETINE HYDROCHLORIDE
     Dosage: 60 UNK, 1X/DAY IN THE MORNING
  2. SPIFEN [Concomitant]
     Active Substance: IBUPROFEN
     Dosage: 400 UNK, 3X/DAY
  3. PANTOPRAZOLE [Concomitant]
     Active Substance: PANTOPRAZOLE
     Dosage: 20 MG, 1X/DAY IN THE AFTERNOON
  4. CHLORAPREP [Suspect]
     Active Substance: CHLORHEXIDINE GLUCONATE\ISOPROPYL ALCOHOL
     Indication: INFECTION PROPHYLAXIS
     Dosage: UNK
     Route: 003
     Dates: start: 20190213, end: 20190213
  5. IMOVANE [Concomitant]
     Active Substance: ZOPICLONE
     Dosage: 2 DOSAGE UNITS, 1X/DAY IN THE AFTERNOON
  6. SEROXAT [Concomitant]
     Active Substance: PAROXETINE HYDROCHLORIDE
     Dosage: 20 MG, 2X/DAY
  7. TERCIAN [Concomitant]
     Active Substance: CYAMEMAZINE
     Dosage: 25 MG, 1X/DAY
  8. DOLIPRANE [Concomitant]
     Active Substance: ACETAMINOPHEN
     Dosage: 1 G, 3X/DAY
  9. LYSANXIA [Concomitant]
     Active Substance: PRAZEPAM
     Dosage: 10 MG, 4X/DAY

REACTIONS (10)
  - Necrosis [Recovering/Resolving]
  - Streptococcus test positive [Unknown]
  - Seroma [Unknown]
  - Scar [Recovering/Resolving]
  - Erythema [Unknown]
  - Citrobacter test positive [Unknown]
  - Staphylococcus test positive [Unknown]
  - Application site erosion [Recovering/Resolving]
  - Application site vesicles [Recovering/Resolving]
  - Wound [Unknown]

NARRATIVE: CASE EVENT DATE: 201902
